FAERS Safety Report 7770689 (Version 5)
Quarter: 2013Q2

REPORT INFORMATION
  Report Type: Spontaneous
  Country: US (occurrence: US)
  Receive Date: 20110124
  Receipt Date: 20130603
  Transmission Date: 20140414
  Serious: Yes (Hospitalization)
  Sender: FDA-Public Use
  Company Number: US-BAYER-2011-006782

PATIENT
  Age: 27 Year
  Sex: Female
  Weight: 95.24 kg

DRUGS (26)
  1. YAZ [Suspect]
     Indication: OVARIAN CYST
  2. YAZ [Suspect]
     Indication: MENSTRUAL CYCLE MANAGEMENT
  3. ALBUTEROL [Concomitant]
     Indication: ASTHMA
     Dosage: UNK
     Dates: start: 1995
  4. SYNTHROID [Concomitant]
     Indication: THYROID DISORDER
  5. MOTRIN [Concomitant]
  6. TYLENOL [Concomitant]
  7. ULTRAM [Concomitant]
  8. OXYCODONE [Concomitant]
     Dosage: 5 MG, UNK
     Route: 048
  9. OXYCODONE [Concomitant]
     Dosage: 325 MG, UNK
     Route: 048
  10. SINGULAIR [Concomitant]
     Dosage: 10 MG, 1TABLET EVERY DAY
     Route: 048
  11. FLOVENT [Concomitant]
  12. MOBIC [Concomitant]
  13. ONDANSETRON [Concomitant]
     Dosage: 4 MG, UNK
     Route: 048
  14. CIPROFLOXACIN [Concomitant]
     Dosage: 500 MG, UNK
     Route: 048
  15. LEVOTHYROXINE SODIUM [Concomitant]
     Dosage: 25 NG,1 TABLET EVERY DAY
     Route: 048
  16. ALBUTEROL SULFATE [Concomitant]
     Indication: COUGH
     Dosage: INHALE 2 PUFFS Q 4-6 HOURS AS NEEDED
     Route: 048
  17. ALBUTEROL SULFATE [Concomitant]
     Indication: WHEEZING
     Dosage: 0.83 MG/ML, UNK
     Route: 045
  18. ALBUTEROL SULFATE [Concomitant]
     Indication: DYSPNOEA
  19. MACROBID [Concomitant]
     Indication: URINARY TRACT INFECTION
  20. ADVAIR [Concomitant]
  21. PERCOCET [Concomitant]
  22. TRAMADOL [Concomitant]
  23. DOXYCYCLINE [Concomitant]
  24. FLAGYL [Concomitant]
  25. FLEXERIL [Concomitant]
  26. METFORMIN [Concomitant]

REACTIONS (7)
  - Pulmonary embolism [None]
  - Pain [None]
  - Emotional distress [None]
  - Anxiety [None]
  - Depression [None]
  - Mental disorder [None]
  - Mental disorder [None]
